FAERS Safety Report 17663374 (Version 5)
Quarter: 2021Q4

REPORT INFORMATION
  Report Type: Spontaneous
  Country: JP (occurrence: JP)
  Receive Date: 20200414
  Receipt Date: 20211025
  Transmission Date: 20220303
  Serious: Yes (Life-Threatening, Hospitalization, Other)
  Sender: FDA-Public Use
  Company Number: JP-AMGEN-JPNSP2020060035

PATIENT
  Age: 87 Year
  Sex: Female

DRUGS (15)
  1. EVENITY [Suspect]
     Active Substance: ROMOSOZUMAB-AQQG
     Indication: Osteoporosis
     Dosage: 210 MILLIGRAM
     Route: 058
     Dates: start: 20200407, end: 20200409
  2. BEOVA [Concomitant]
     Indication: Hypertonic bladder
     Dosage: 50 MILLIGRAM, QD
     Dates: start: 20190412, end: 20200410
  3. DEPAS [DICLOFENAC;DICYCLOVERINE HYDROCHLORIDE] [Concomitant]
     Indication: Insomnia
     Dosage: 0.5 MILLIGRAM, BID
     Dates: start: 20160405, end: 20200410
  4. DEPAS [DICLOFENAC;DICYCLOVERINE HYDROCHLORIDE] [Concomitant]
     Indication: Depression
  5. LUDIOMIL [Concomitant]
     Active Substance: MAPROTILINE HYDROCHLORIDE
     Indication: Insomnia
     Dosage: 25 MILLIGRAM, QD
     Dates: start: 20160405, end: 20200410
  6. LUDIOMIL [Concomitant]
     Active Substance: MAPROTILINE HYDROCHLORIDE
     Indication: Depression
  7. ZOPICLONE [Concomitant]
     Active Substance: ZOPICLONE
     Indication: Insomnia
     Dosage: 7.5 MILLIGRAM, QD
     Dates: start: 20160405, end: 20200410
  8. ZOPICLONE [Concomitant]
     Active Substance: ZOPICLONE
     Indication: Depression
  9. SULPIRIDE [Concomitant]
     Active Substance: SULPIRIDE
     Indication: Insomnia
     Dosage: 50 MILLIGRAM, TID
     Dates: start: 20160405, end: 20160410
  10. SULPIRIDE [Concomitant]
     Active Substance: SULPIRIDE
     Indication: Depression
  11. VONOPRAZAN FUMARATE [Concomitant]
     Active Substance: VONOPRAZAN FUMARATE
     Indication: Gastrooesophageal reflux disease
     Dosage: 20 MILLIGRAM, QD
     Dates: start: 20150706, end: 20200410
  12. VONOPRAZAN FUMARATE [Concomitant]
     Active Substance: VONOPRAZAN FUMARATE
     Indication: Chronic gastritis
  13. VONOPRAZAN FUMARATE [Concomitant]
     Active Substance: VONOPRAZAN FUMARATE
     Indication: Constipation
  14. AMLODIPINE BESYLATE\AZILSARTAN [Concomitant]
     Active Substance: AMLODIPINE BESYLATE\AZILSARTAN
     Indication: Angina pectoris
     Dosage: 1 DOSAGE FORM, QD
     Dates: start: 20180903, end: 20200410
  15. AMLODIPINE BESYLATE\AZILSARTAN [Concomitant]
     Active Substance: AMLODIPINE BESYLATE\AZILSARTAN
     Indication: Hypertension

REACTIONS (1)
  - Immune thrombocytopenia [Unknown]

NARRATIVE: CASE EVENT DATE: 20200409
